FAERS Safety Report 9539039 (Version 2)
Quarter: 2013Q4

REPORT INFORMATION
  Report Type: Spontaneous
  Country: DE (occurrence: DE)
  Receive Date: 20130920
  Receipt Date: 20131009
  Transmission Date: 20140711
  Serious: Yes (Congenital Anomaly)
  Sender: FDA-Public Use
  Company Number: DE-JNJFOC-20130906605

PATIENT
  Sex: Female

DRUGS (4)
  1. TOPAMAX [Suspect]
     Indication: MIGRAINE PROPHYLAXIS
     Dosage: DURING FIRST TRIMESTER (0-20 WEEKS 4 DAYS OF GESTATION).THE FETUS MOTHER WAS TREATED WITH 25-50 MG.
     Route: 064
     Dates: start: 20071226, end: 20080520
  2. IBUPROFEN [Suspect]
     Indication: MIGRAINE
     Dosage: DURING FIRST TRIMESTER (0 TO 15 WEEKS OF GESTATION)
     Route: 064
  3. MISOPROSTOL [Suspect]
     Indication: LABOUR INDUCTION
     Dosage: DURING SECOND TRIMESTER (20 TO 20 WEEKS 2 DAYS OF GESTATION)
     Route: 064
  4. GEMEPROST [Suspect]
     Indication: LABOUR INDUCTION
     Dosage: DURING SECOND TRIMESTER (ON 20 WEEKS 3 DAYS OF GESTATION)
     Route: 064
     Dates: start: 20080519, end: 20080519

REACTIONS (2)
  - Arnold-Chiari malformation [Not Recovered/Not Resolved]
  - Foetal exposure during pregnancy [Recovered/Resolved]
